FAERS Safety Report 11320692 (Version 1)
Quarter: 2015Q3

REPORT INFORMATION
  Report Type: Spontaneous
  Country: US (occurrence: US)
  Receive Date: 20150729
  Receipt Date: 20150729
  Transmission Date: 20151125
  Serious: No
  Sender: FDA-Public Use
  Company Number: US-BAUSCH-BL-2015-000030

PATIENT
  Sex: Female

DRUGS (1)
  1. OPCON-A [Suspect]
     Active Substance: NAPHAZOLINE HYDROCHLORIDE\PHENIRAMINE MALEATE
     Indication: EYE PRURITUS
     Dosage: 1 DROP RIGHT EYE
     Route: 061
     Dates: start: 20141231

REACTIONS (2)
  - Medication error [Unknown]
  - Mydriasis [Unknown]

NARRATIVE: CASE EVENT DATE: 20141231
